FAERS Safety Report 10172460 (Version 3)
Quarter: 2015Q1

REPORT INFORMATION
  Report Type: Spontaneous
  Country: US (occurrence: US)
  Receive Date: 20140515
  Receipt Date: 20150206
  Transmission Date: 20150720
  Serious: Yes (Hospitalization, Other)
  Sender: FDA-Public Use
  Company Number: US-BAYER-2014-069314

PATIENT
  Age: 24 Year
  Sex: Female
  Weight: 74.83 kg

DRUGS (2)
  1. MIRENA [Suspect]
     Active Substance: LEVONORGESTREL
     Indication: CONTRACEPTION
     Dosage: 20 MCG/24HR, CONT
     Route: 015
     Dates: start: 20120209, end: 20120502
  2. MIRENA [Suspect]
     Active Substance: LEVONORGESTREL
     Indication: CONTRACEPTION
     Dosage: 20 MCG/24HR, CONT
     Route: 015
     Dates: start: 20080331, end: 20100409

REACTIONS (13)
  - Genital haemorrhage [None]
  - Pelvic pain [None]
  - Emotional distress [None]
  - Depression [None]
  - Internal injury [None]
  - Medical device discomfort [None]
  - Abdominal pain [None]
  - Device dislocation [None]
  - Uterine perforation [None]
  - Pelvic inflammatory disease [None]
  - Anxiety [None]
  - Depressed mood [None]
  - Fear [None]

NARRATIVE: CASE EVENT DATE: 201205
